FAERS Safety Report 5699174-4 (Version None)
Quarter: 2008Q2

REPORT INFORMATION
  Report Type: 
  Country: None (occurrence: None)
  Receive Date: 20080407
  Receipt Date: 20080407
  Transmission Date: 20081010
  Serious: No
  Sender: FDA-Public Use
  Company Number: None

PATIENT
  Age: 59 Year
  Sex: Male
  Weight: 87.0906 kg

DRUGS (2)
  1. FLONASE [Suspect]
     Indication: HYPERSENSITIVITY
     Dosage: SPRAY ONCE IN EACH NOSTRIL DAILY NASAL
     Route: 045
     Dates: start: 20020315, end: 20080315
  2. FLUTICASONE NASAL 50 MCG PER SPRAY [Suspect]

REACTIONS (2)
  - LIP SWELLING [None]
  - OEDEMA MOUTH [None]
